FAERS Safety Report 15549505 (Version 2)
Quarter: 2020Q1

REPORT INFORMATION
  Report Type: Spontaneous
  Country: US (occurrence: US)
  Receive Date: 20181025
  Receipt Date: 20200305
  Transmission Date: 20200409
  Serious: No
  Sender: FDA-Public Use
  Company Number: US-PFIZER INC-2018428782

PATIENT
  Age: 71 Year
  Sex: Female

DRUGS (1)
  1. XELJANZ XR [Suspect]
     Active Substance: TOFACITINIB CITRATE
     Indication: PULMONARY MASS
     Dosage: 11 MG, UNK

REACTIONS (5)
  - Gastric disorder [Unknown]
  - Product use in unapproved indication [Unknown]
  - Off label use [Unknown]
  - Diarrhoea [Unknown]
  - Drug effective for unapproved indication [Unknown]
